FAERS Safety Report 4407855-5 (Version None)
Quarter: 2004Q3

REPORT INFORMATION
  Report Type: 
  Country: None (occurrence: None)
  Receive Date: 20040726
  Receipt Date: 20040709
  Transmission Date: 20050211
  Serious: Yes (Hospitalization)
  Sender: FDA-Public Use
  Company Number: 2004012646

PATIENT
  Age: 40 Year
  Sex: Male
  Weight: 81 kg

DRUGS (1)
  1. RETROVIR [Suspect]
     Dosage: 8TAB SINGLE DOSE
     Route: 048

REACTIONS (3)
  - OVERDOSE [None]
  - PANIC REACTION [None]
  - SUICIDE ATTEMPT [None]
